FAERS Safety Report 7686784-8 (Version None)
Quarter: 2011Q3

REPORT INFORMATION
  Report Type: 
  Country: None (occurrence: None)
  Receive Date: 20110816
  Receipt Date: 20110805
  Transmission Date: 20111222
  Serious: Yes (Hospitalization, Other)
  Sender: FDA-Public Use
  Company Number: PHHY2011DE71264

PATIENT
  Age: 8 Year

DRUGS (2)
  1. ACYCLOVIR [Suspect]
     Indication: NEPHROTIC SYNDROME
     Dosage: 30 MG/KG BW/D
     Route: 042
  2. PREDNISOLONE [Suspect]
     Indication: NEPHROTIC SYNDROME
     Dosage: 60 MG/M2

REACTIONS (13)
  - ALANINE AMINOTRANSFERASE INCREASED [None]
  - BLOOD CHOLINESTERASE DECREASED [None]
  - PAIN IN EXTREMITY [None]
  - ASPARTATE AMINOTRANSFERASE INCREASED [None]
  - GAMMA-GLUTAMYLTRANSFERASE INCREASED [None]
  - BLOOD LACTATE DEHYDROGENASE INCREASED [None]
  - LIVER FUNCTION TEST ABNORMAL [None]
  - FIBRIN D DIMER INCREASED [None]
  - HERPES ZOSTER [None]
  - FATIGUE [None]
  - DISSEMINATED INTRAVASCULAR COAGULATION [None]
  - SKIN LESION [None]
  - BLOOD ALBUMIN DECREASED [None]
